FAERS Safety Report 9736655 (Version 2)
Quarter: 2015Q3

REPORT INFORMATION
  Report Type: Spontaneous
  Country: US (occurrence: US)
  Receive Date: 20131206
  Receipt Date: 20150804
  Transmission Date: 20151125
  Serious: No
  Sender: FDA-Public Use
  Company Number: US-GILEAD-2009-0022848

PATIENT
  Age: 73 Year
  Sex: Male
  Weight: 86.18 kg

DRUGS (15)
  1. WARFARIN [Concomitant]
     Active Substance: WARFARIN
  2. NORVASC [Concomitant]
     Active Substance: AMLODIPINE BESYLATE
  3. ATENOLOL. [Concomitant]
     Active Substance: ATENOLOL
  4. SIMVASTATIN. [Concomitant]
     Active Substance: SIMVASTATIN
  5. ACTOS [Concomitant]
     Active Substance: PIOGLITAZONE HYDROCHLORIDE
  6. VITAMIN B12 [Concomitant]
     Active Substance: CYANOCOBALAMIN
  7. COMBIVENT [Concomitant]
     Active Substance: ALBUTEROL SULFATE\IPRATROPIUM BROMIDE
  8. ALTACE [Concomitant]
     Active Substance: RAMIPRIL
  9. OMEPRAZOLE. [Concomitant]
     Active Substance: OMEPRAZOLE
  10. AFRIN SALINE NASAL MIST [Concomitant]
  11. ASPIRIN. [Concomitant]
     Active Substance: ASPIRIN
  12. OXYGEN. [Concomitant]
     Active Substance: OXYGEN
  13. LETAIRIS [Suspect]
     Active Substance: AMBRISENTAN
     Indication: PULMONARY ARTERIAL HYPERTENSION
     Route: 048
  14. LETAIRIS [Suspect]
     Active Substance: AMBRISENTAN
     Route: 048
     Dates: start: 20080911
  15. CEFUROXIME AXETIL. [Concomitant]
     Active Substance: CEFUROXIME AXETIL

REACTIONS (2)
  - Hearing impaired [Unknown]
  - Dyspnoea [Unknown]
